FAERS Safety Report 9586217 (Version 1)
Quarter: 2013Q4

REPORT INFORMATION
  Report Type: Spontaneous
  Country: US (occurrence: None)
  Receive Date: 20131002
  Receipt Date: 20131002
  Transmission Date: 20140711
  Serious: No
  Sender: FDA-Public Use
  Company Number: None

PATIENT
  Sex: 0

DRUGS (2)
  1. VICODIN [Suspect]
     Indication: NEPHROLITHIASIS
  2. VICODIN [Suspect]
     Indication: SUBSTANCE USE

REACTIONS (1)
  - Drug prescribing error [None]
